FAERS Safety Report 10969667 (Version 2)
Quarter: 2015Q2

REPORT INFORMATION
  Report Type: Report from Study
  Country: TR (occurrence: None)
  Receive Date: 20150327
  Receipt Date: 20150402
  Transmission Date: 20150821
  Serious: Yes (Other)
  Sender: FDA-Public Use
  Company Number: 8017857

PATIENT
  Age: 36 Year
  Sex: Male
  Weight: 78 kg

DRUGS (4)
  1. LUSTRAL (SERTRALINE HYDROCHLORIDE) (TABLET) [Concomitant]
  2. REBIF [Suspect]
     Active Substance: INTERFERON BETA-1A
     Indication: MULTIPLE SCLEROSIS
     Dosage: 44 MCG, 3 IN 1 WK
     Dates: end: 201206
  3. EUTHYROX (LEVOTHYROXINE SODIUM) (LEVOTHYROXINE SODIUM) [Suspect]
     Active Substance: LEVOTHYROXINE SODIUM
     Indication: HYPOTHYROIDISM
     Dosage: 50MCG AND 75 MCG ALTERNATIVELY
  4. SUPRAFEN (IBUPROFEN) [Concomitant]

REACTIONS (1)
  - Mitral valve incompetence [None]

NARRATIVE: CASE EVENT DATE: 201502
